FAERS Safety Report 17656088 (Version 1)
Quarter: 2020Q2

REPORT INFORMATION
  Report Type: Spontaneous
  Country: US (occurrence: US)
  Receive Date: 20200409
  Receipt Date: 20200409
  Transmission Date: 20200713
  Serious: No
  Sender: FDA-Public Use
  Company Number: None

PATIENT
  Age: 81 Year
  Sex: Male

DRUGS (2)
  1. ALBUTEROL (ALBUTEROL 90MCG/ACTUAT (CFC-F) INHL, ORAL, 18GM DOSE COUNTE [Suspect]
     Active Substance: ALBUTEROL SULFATE
     Indication: CHRONIC OBSTRUCTIVE PULMONARY DISEASE
     Dates: start: 20120730
  2. ALBUTEROL (ALBUTEROL 90MCG/ACTUAT (CFC-F) INHL, ORAL, 18GM DOSE COUNTE [Suspect]
     Active Substance: ALBUTEROL SULFATE
     Indication: UPPER RESPIRATORY TRACT INFECTION
     Dates: start: 20120730

REACTIONS (4)
  - Palpitations [None]
  - Atrial flutter [None]
  - Pneumonia [None]
  - Tachycardia [None]

NARRATIVE: CASE EVENT DATE: 20180201
